FAERS Safety Report 6203390-2 (Version None)
Quarter: 2009Q2

REPORT INFORMATION
  Report Type: 
  Country: None (occurrence: None)
  Receive Date: 20090521
  Receipt Date: 20090511
  Transmission Date: 20091009
  Serious: Yes (Hospitalization)
  Sender: FDA-Public Use
  Company Number: 2009001401

PATIENT
  Age: 57 Year
  Sex: Male

DRUGS (11)
  1. ERLOTINIB             (ERLOTINIB) [Suspect]
     Indication: NON-SMALL CELL LUNG CANCER
     Dosage: (150 MG, QD), ORAL; (100 MG, QD)
     Route: 048
     Dates: start: 20090403, end: 20090409
  2. ERLOTINIB             (ERLOTINIB) [Suspect]
     Indication: NON-SMALL CELL LUNG CANCER
     Dosage: (150 MG, QD), ORAL; (100 MG, QD)
     Route: 048
     Dates: start: 20090428
  3. BLINDED RO 4858696 [Suspect]
     Indication: NON-SMALL CELL LUNG CANCER
     Dosage: INTRAVENOUS
     Route: 042
     Dates: start: 20090403
  4. AMPHOTERICIN B [Concomitant]
  5. NYSTATIN [Concomitant]
  6. IBUPROFEN [Concomitant]
  7. TARGIN [Concomitant]
  8. ICHTHYOL (ICHTHAMMOL) [Concomitant]
  9. PANTOPRAZOLE SODIUM [Concomitant]
  10. METRONIDAZOLE [Concomitant]
  11. ELOCON [Concomitant]

REACTIONS (4)
  - GENERAL PHYSICAL HEALTH DETERIORATION [None]
  - MUCOSAL INFLAMMATION [None]
  - RECTAL ABSCESS [None]
  - SKIN EXFOLIATION [None]
